FAERS Safety Report 20666470 (Version 1)
Quarter: 2022Q2

REPORT INFORMATION
  Report Type: Spontaneous
  Country: US (occurrence: US)
  Receive Date: 20220403
  Receipt Date: 20220403
  Transmission Date: 20220721
  Serious: No
  Sender: FDA-Public Use
  Company Number: US-SA-SAC20220331001456

PATIENT
  Sex: Female

DRUGS (17)
  1. AUBAGIO [Suspect]
     Active Substance: TERIFLUNOMIDE
     Indication: Multiple sclerosis
     Dosage: 14 MG, QD
     Route: 048
  2. VENLAFAXINE [Suspect]
     Active Substance: VENLAFAXINE HYDROCHLORIDE
     Dosage: UNK
  3. CYANOCOBALAMIN [Concomitant]
     Active Substance: CYANOCOBALAMIN
  4. PRAVASTATIN SODIUM [Concomitant]
     Active Substance: PRAVASTATIN SODIUM
     Dosage: UNK
  5. ARMOUR THYROID [Concomitant]
     Active Substance: THYROID, PORCINE
  6. VITAMIN C [Concomitant]
     Active Substance: ASCORBIC ACID
  7. FISH OIL [Concomitant]
     Active Substance: FISH OIL
  8. MINERALS\VITAMINS [Concomitant]
     Active Substance: MINERALS\VITAMINS
  9. ACETYL L-CARNITINE [ACETYLCARNITINE] [Concomitant]
  10. BACLOFEN [Concomitant]
     Active Substance: BACLOFEN
  11. PROBIOTICS NOS [Concomitant]
     Active Substance: PROBIOTICS NOS
  12. VITAMIN D3 [Concomitant]
     Active Substance: CHOLECALCIFEROL
  13. VITAMINS [Concomitant]
     Active Substance: VITAMINS
  14. METOPROLOL SUCCINATE [Concomitant]
     Active Substance: METOPROLOL SUCCINATE
  15. ASPIRIN [Concomitant]
     Active Substance: ASPIRIN
  16. LISINOPRIL [Concomitant]
     Active Substance: LISINOPRIL
  17. BUDESONIDE [Concomitant]
     Active Substance: BUDESONIDE

REACTIONS (2)
  - Drainage [Unknown]
  - Cough [Unknown]
